FAERS Safety Report 22023002 (Version 1)
Quarter: 2023Q1

REPORT INFORMATION
  Report Type: Report from Study
  Country: ES (occurrence: ES)
  Receive Date: 20230222
  Receipt Date: 20230222
  Transmission Date: 20230417
  Serious: Yes (Hospitalization, Other)
  Sender: FDA-Public Use
  Company Number: ES-BRISTOL-MYERS SQUIBB COMPANY-2022-119148

PATIENT
  Age: 67 Year
  Sex: Male
  Weight: 74 kg

DRUGS (17)
  1. IPILIMUMAB [Suspect]
     Active Substance: IPILIMUMAB
     Indication: Colorectal cancer
     Dosage: DRUG INTERRUPTED?MOST RECENT DOSE OF IPILIMUMAB ON 10-AUG-2022
     Route: 042
     Dates: start: 20220608
  2. TRAMETINIB [Suspect]
     Active Substance: TRAMETINIB
     Indication: Colorectal cancer
     Dosage: DRUG INTERRUPTED?MOST RECENT DOSE 1 MG RECEIVED ON 27-SEP-2022
     Route: 048
     Dates: start: 20220608
  3. ALBUTEROL [Concomitant]
     Active Substance: ALBUTEROL
     Indication: Dyspnoea
     Route: 055
     Dates: start: 201911
  4. ALBUTEROL [Concomitant]
     Active Substance: ALBUTEROL
     Route: 048
     Dates: start: 20220704
  5. PREDNISONE [Concomitant]
     Active Substance: PREDNISONE
     Indication: Rash
     Route: 048
     Dates: start: 20220908, end: 20220915
  6. PREDNISONE [Concomitant]
     Active Substance: PREDNISONE
     Route: 048
     Dates: start: 20220916, end: 20220922
  7. INDACATEROL [Concomitant]
     Active Substance: INDACATEROL
     Indication: Product used for unknown indication
     Route: 055
     Dates: start: 20211028
  8. GLYCOPYRRONIUM\INDACATEROL [Concomitant]
     Active Substance: GLYCOPYRRONIUM\INDACATEROL
     Indication: Dyspnoea
     Dosage: 85 (UNITES NOT REPORTED)
     Route: 055
     Dates: start: 20211028
  9. GLYCOPYRRONIUM\INDACATEROL [Concomitant]
     Active Substance: GLYCOPYRRONIUM\INDACATEROL
     Dosage: 1 (UNITES NOT REPORTED)
     Route: 048
     Dates: start: 20220704
  10. CEFTRIAXONE [Concomitant]
     Active Substance: CEFTRIAXONE
     Indication: Urinary tract infection
     Route: 042
     Dates: start: 20220926, end: 20220928
  11. POSITON TOPICO [Concomitant]
     Indication: Rash
     Route: 061
     Dates: start: 20220701
  12. TRANICLONE TOPICAL EMULSION [Concomitant]
     Indication: Rash
     Route: 061
     Dates: start: 20220701
  13. NYSTATIN [Concomitant]
     Active Substance: NYSTATIN
     Indication: Pruritus
     Dosage: 3 UNIT NOT SPECIFIED
     Route: 061
     Dates: start: 20220704
  14. HYDROXYZINE [Concomitant]
     Active Substance: HYDROXYZINE HYDROCHLORIDE
     Indication: Rash
     Dosage: 1 (UNIT NOT SPECIFIED)
     Route: 048
     Dates: start: 20220901
  15. CICAPLAST [Concomitant]
     Indication: Paronychia
     Dosage: 1 UNIT NOT SPECIFIED
     Route: 061
     Dates: start: 20220921
  16. EBASTEL FORTE [Concomitant]
     Indication: Rash
     Route: 048
     Dates: start: 20220704, end: 20221010
  17. EBASTEL FORTE [Concomitant]
     Route: 048
     Dates: start: 20220901

REACTIONS (1)
  - Erythrodermic psoriasis [Recovered/Resolved]

NARRATIVE: CASE EVENT DATE: 20220927
